FAERS Safety Report 9973815 (Version 2)
Quarter: 2014Q1

REPORT INFORMATION
  Report Type: Spontaneous
  Country: CA (occurrence: CA)
  Receive Date: 20140306
  Receipt Date: 20140325
  Transmission Date: 20141002
  Serious: Yes (Death)
  Sender: FDA-Public Use
  Company Number: CA-CELGENEUS-028-21880-14024715

PATIENT
  Age: 53 Year
  Sex: Male
  Weight: 77.7 kg

DRUGS (12)
  1. REVLIMID [Suspect]
     Indication: PLASMA CELL MYELOMA
     Route: 048
  2. DEXAMETHASONE [Suspect]
     Indication: PLASMA CELL MYELOMA
     Route: 065
  3. ASA [Concomitant]
     Indication: PRODUCT USED FOR UNKNOWN INDICATION
     Route: 065
     Dates: start: 20120207
  4. CITALOPRAM [Concomitant]
     Indication: PRODUCT USED FOR UNKNOWN INDICATION
     Route: 065
     Dates: start: 20100715
  5. FUCIDIN [Concomitant]
     Indication: PRODUCT USED FOR UNKNOWN INDICATION
     Route: 065
     Dates: start: 20120113
  6. SENOKOT [Concomitant]
     Indication: ADVERSE EVENT
     Route: 065
     Dates: start: 20120215
  7. LACTULOSE [Concomitant]
     Indication: ADVERSE EVENT
     Route: 065
     Dates: start: 20120215
  8. TYLENOL ES [Concomitant]
     Indication: ADVERSE EVENT
     Route: 065
     Dates: start: 20120215
  9. HYDROMORPHONE [Concomitant]
     Indication: ADVERSE EVENT
     Route: 065
     Dates: start: 20120329
  10. HYDROMORPH CONTIN [Concomitant]
     Indication: ADVERSE EVENT
     Route: 065
     Dates: start: 20120302
  11. ATIVAN [Concomitant]
     Indication: ADVERSE EVENT
     Route: 065
     Dates: start: 20120403, end: 20120403
  12. NOVO NAPROX [Concomitant]
     Indication: ADVERSE EVENT
     Route: 065
     Dates: start: 20120426, end: 20120501

REACTIONS (1)
  - Death [Fatal]
